FAERS Safety Report 18868254 (Version 1)
Quarter: 2021Q1

REPORT INFORMATION
  Report Type: Spontaneous
  Country: CA (occurrence: CA)
  Receive Date: 20210209
  Receipt Date: 20210209
  Transmission Date: 20210420
  Serious: Yes (Hospitalization)
  Sender: FDA-Public Use
  Company Number: CA-JNJFOC-20210213242

PATIENT
  Age: 17 Year
  Sex: Female
  Weight: 64 kg

DRUGS (5)
  1. LACOSAMIDE. [Concomitant]
     Active Substance: LACOSAMIDE
  2. CLOBAZAM. [Concomitant]
     Active Substance: CLOBAZAM
  3. RIVAROXABAN [Suspect]
     Active Substance: RIVAROXABAN
     Indication: ANTICOAGULANT THERAPY
     Dosage: 20 MG, QD
     Route: 048
  4. RIVAROXABAN [Suspect]
     Active Substance: RIVAROXABAN
     Dosage: UNK UNK, QD
     Route: 048
  5. METHYLPHENIDATE. [Concomitant]
     Active Substance: METHYLPHENIDATE

REACTIONS (1)
  - Thrombophlebitis [Unknown]
